FAERS Safety Report 20163029 (Version 1)
Quarter: 2021Q4

REPORT INFORMATION
  Report Type: Spontaneous
  Country: US (occurrence: US)
  Receive Date: 20211209
  Receipt Date: 20211209
  Transmission Date: 20220304
  Serious: Yes (Death, Life-Threatening, Hospitalization, Other)
  Sender: FDA-Public Use
  Company Number: US-AMGEN-USASP2021191643

PATIENT
  Age: 68 Year
  Sex: Male

DRUGS (3)
  1. INFLIXIMAB [Suspect]
     Active Substance: INFLIXIMAB
     Indication: Colitis
     Dosage: UNK
     Route: 065
  2. INFLIXIMAB [Suspect]
     Active Substance: INFLIXIMAB
     Indication: Off label use
  3. SOLU-MEDROL [Concomitant]
     Active Substance: METHYLPREDNISOLONE SODIUM SUCCINATE
     Indication: Colitis
     Dosage: UNK

REACTIONS (13)
  - Death [Fatal]
  - Postoperative respiratory failure [Unknown]
  - Myocarditis [Unknown]
  - Multiple organ dysfunction syndrome [Unknown]
  - Intestinal ischaemia [Unknown]
  - Necrosis [Unknown]
  - Perforation [Unknown]
  - Megacolon [Unknown]
  - Haemorrhage [Unknown]
  - Haemodynamic instability [Unknown]
  - Shock [Unknown]
  - Pneumonitis [Unknown]
  - Off label use [Unknown]
